FAERS Safety Report 11556510 (Version 1)
Quarter: 2015Q3

REPORT INFORMATION
  Report Type: Spontaneous
  Country: US (occurrence: US)
  Receive Date: 20150916
  Receipt Date: 20150916
  Transmission Date: 20151125
  Serious: No
  Sender: FDA-Public Use
  Company Number: US-ELI_LILLY_AND_COMPANY-US200806000647

PATIENT
  Age: 71 Year
  Sex: Female

DRUGS (1)
  1. FORTEO [Suspect]
     Active Substance: TERIPARATIDE
     Indication: OSTEOPOROSIS
     Dates: start: 200801

REACTIONS (11)
  - Balance disorder [Unknown]
  - Malaise [Unknown]
  - Diarrhoea [Recovered/Resolved]
  - Asthenia [Unknown]
  - Fear [Unknown]
  - Influenza like illness [Unknown]
  - Nausea [Not Recovered/Not Resolved]
  - Vision blurred [Recovered/Resolved]
  - Decreased appetite [Unknown]
  - Dizziness [Not Recovered/Not Resolved]
  - Emotional distress [Unknown]

NARRATIVE: CASE EVENT DATE: 20080531
